FAERS Safety Report 9093823 (Version 1)
Quarter: 2013Q1

REPORT INFORMATION
  Report Type: Spontaneous
  Country: US (occurrence: None)
  Receive Date: 20130122
  Receipt Date: 20130122
  Transmission Date: 20140127
  Serious: Yes (Hospitalization)
  Sender: FDA-Public Use
  Company Number: IMP_06137_2013

PATIENT
  Age: 59 Year
  Sex: Female

DRUGS (7)
  1. METFORMIN [Suspect]
     Indication: TYPE 2 DIABETES MELLITUS
  2. LEVOTHYROXINE [Concomitant]
  3. INSULIN DETEMIR [Concomitant]
  4. INSULIN ASPART [Concomitant]
  5. ALENDRONATE [Concomitant]
  6. ASPIRIN [Concomitant]
  7. LISINOPRIL [Concomitant]

REACTIONS (7)
  - Abdominal pain upper [None]
  - Nausea [None]
  - Hypophagia [None]
  - Biliary colic [None]
  - Renal impairment [None]
  - Lactic acidosis [None]
  - Pancreatitis acute [None]
